FAERS Safety Report 4979707-3 (Version None)
Quarter: 2006Q3

REPORT INFORMATION
  Report Type: 
  Country: None (occurrence: None)
  Receive Date: 20060418
  Receipt Date: 20060405
  Transmission Date: 20061208
  Serious: Yes (Hospitalization)
  Sender: FDA-Public Use
  Company Number: 6021794

PATIENT
  Age: 39 Year
  Sex: Male

DRUGS (10)
  1. BISOPROLOL FUMARATE [Suspect]
     Indication: DRUG USE FOR UNKNOWN INDICATION
     Dosage: ORAL
     Route: 048
     Dates: start: 20060207
  2. REOPRO [Suspect]
     Indication: MYOCARDIAL INFARCTION
     Dosage: INTRAVENOUS
     Route: 042
     Dates: start: 20060131, end: 20060131
  3. METALYSE [Suspect]
     Indication: MYOCARDIAL INFARCTION
     Dosage: INTRAVENOUS (NOT OTHERWISE SPECIFIED)
     Route: 042
     Dates: start: 20050131, end: 20060131
  4. PLAVIX [Concomitant]
  5. ASPEGIC 1000 [Concomitant]
  6. OMEPRAZOLE [Concomitant]
  7. ATORVASTATIN CALCIUM [Concomitant]
  8. RAMIPRIL [Concomitant]
  9. NICOPATCH  (NICOTINE) [Concomitant]
  10. LOVENOX [Concomitant]

REACTIONS (5)
  - CONDITION AGGRAVATED [None]
  - EPISTAXIS [None]
  - MYOCARDIAL INFARCTION [None]
  - THROMBOCYTOPENIC PURPURA [None]
  - VENTRICULAR FIBRILLATION [None]
